FAERS Safety Report 5665256-6 (Version None)
Quarter: 2008Q1

REPORT INFORMATION
  Report Type: 
  Country: None (occurrence: None)
  Receive Date: 20080314
  Receipt Date: 20060927
  Transmission Date: 20080703
  Serious: No
  Sender: FDA-Public Use
  Company Number: US-ABBOTT-06P-163-0345108-00

PATIENT
  Sex: Female
  Weight: 82.628 kg

DRUGS (10)
  1. HUMIRA [Suspect]
     Indication: RHEUMATOID ARTHRITIS
     Route: 058
     Dates: start: 20050101, end: 20060921
  2. LEVOTHYROXINE SODIUM [Suspect]
     Indication: HYPOTHYROIDISM
     Route: 048
     Dates: start: 20040101
  3. AMLODIPINE BESYLATE [Concomitant]
     Indication: HYPERTENSION
     Route: 048
  4. METAGLIP [Concomitant]
     Indication: DIABETES MELLITUS
     Route: 048
  5. ESTROTEST [Concomitant]
     Indication: HORMONE REPLACEMENT THERAPY
     Route: 048
  6. SERTRALINE HYDROCHLORIDE [Concomitant]
     Indication: ANXIETY
     Route: 048
  7. PREDNISONE TAB [Concomitant]
     Indication: INFLAMMATION
     Route: 048
  8. TRAMADOL HCL [Concomitant]
     Indication: PAIN
     Route: 048
  9. TRAMADOL HCL [Concomitant]
     Indication: INFLAMMATION
  10. INSULIN GLARGINE [Concomitant]
     Indication: DIABETES MELLITUS
     Route: 058

REACTIONS (1)
  - TOOTH ABSCESS [None]
